FAERS Safety Report 25054503 (Version 1)
Quarter: 2025Q1

REPORT INFORMATION
  Report Type: Spontaneous
  Country: GB (occurrence: GB)
  Receive Date: 20250307
  Receipt Date: 20250307
  Transmission Date: 20250408
  Serious: Yes (Other)
  Sender: ROCHE
  Company Number: None

PATIENT
  Age: 59 Year

DRUGS (9)
  1. OCRELIZUMAB [Suspect]
     Active Substance: OCRELIZUMAB
     Indication: Multiple sclerosis
     Route: 042
     Dates: start: 202404
  2. Linaclotide 290microgram capsules [Concomitant]
     Dosage: EACH MORNING
     Route: 048
     Dates: start: 20231218
  3. Estradiol + Dydrogesterone}Estradiol 500micrograms / Dydrogesterone 2. [Concomitant]
     Dosage: EACH MORNING
     Route: 048
     Dates: start: 20241218
  4. Colecalciferol 800unit capsules}InVita D3 800unit capsules (Forum Heal [Concomitant]
     Dosage: 3 CAPSULES EACH MORNING
     Route: 048
     Dates: start: 20231218
  5. BACLOFEN [Concomitant]
     Active Substance: BACLOFEN
     Route: 048
     Dates: start: 20231218
  6. ACETAMINOPHEN [Concomitant]
     Active Substance: ACETAMINOPHEN
     Route: 048
     Dates: start: 20241218
  7. DIAZEPAM [Concomitant]
     Active Substance: DIAZEPAM
     Route: 048
     Dates: start: 20240206
  8. Senna 7.5mg tablets [Concomitant]
     Route: 048
     Dates: start: 20231218
  9. Duloxetine 60mg gastro-resistant capsules [Concomitant]
     Dosage: ONE EACH DAY
     Route: 048
     Dates: start: 20240910

REACTIONS (4)
  - Erythema [Recovered/Resolved]
  - Rash pruritic [Recovered/Resolved]
  - Acarodermatitis [Unknown]
  - Blister [Recovered/Resolved]

NARRATIVE: CASE EVENT DATE: 20240701
